FAERS Safety Report 6807369-9 (Version None)
Quarter: 2010Q2

REPORT INFORMATION
  Report Type: 
  Country: None (occurrence: None)
  Receive Date: 20100629
  Receipt Date: 20080819
  Transmission Date: 20101027
  Serious: No
  Sender: FDA-Public Use
  Company Number: US-PFIZER INC-2008070087

PATIENT
  Sex: Male
  Weight: 71.818 kg

DRUGS (9)
  1. VIAGRA [Suspect]
     Indication: ERECTILE DYSFUNCTION
     Dates: start: 20050101
  2. LISINOPRIL [Concomitant]
  3. REYATAZ [Concomitant]
  4. EPZICOM [Concomitant]
  5. MONTELUKAST SODIUM [Concomitant]
  6. OXANDROLONE [Concomitant]
  7. DOXYCYCLINE [Concomitant]
  8. CEPHALEXIN [Concomitant]
  9. ALL OTHER THERAPEUTIC PRODUCTS [Concomitant]

REACTIONS (2)
  - FLUSHING [None]
  - OCULAR HYPERAEMIA [None]
